FAERS Safety Report 20988698 (Version 2)
Quarter: 2022Q3

REPORT INFORMATION
  Report Type: Spontaneous
  Country: JP (occurrence: JP)
  Receive Date: 20220621
  Receipt Date: 20220707
  Transmission Date: 20221027
  Serious: Yes (Life-Threatening, Hospitalization, Other)
  Sender: FDA-Public Use
  Company Number: JP-PFIZER INC-202200852232

PATIENT
  Age: 15 Year
  Sex: Female
  Weight: 39.2 kg

DRUGS (8)
  1. SOLU-MEDROL [Suspect]
     Active Substance: METHYLPREDNISOLONE SODIUM SUCCINATE
     Indication: Colitis ulcerative
     Dosage: SINGLE AS PULSE THERAPY
     Route: 042
     Dates: start: 20220415, end: 20220415
  2. PENTASA [Suspect]
     Active Substance: MESALAMINE
     Indication: Colitis ulcerative
     Dosage: 2000 MG (250MG X 8 TABLETS), 2X/DAY
     Route: 048
     Dates: start: 20211223, end: 20220416
  3. AZATHIOPRINE [Suspect]
     Active Substance: AZATHIOPRINE
     Indication: Colitis ulcerative
     Dosage: 25 MG, 1X/DAY
     Route: 048
     Dates: start: 20220226, end: 20220416
  4. TACROLIMUS [Suspect]
     Active Substance: TACROLIMUS
     Indication: Colitis ulcerative
     Dosage: 7.5 MG (4.5 MG IN THE MORNING, 3.0 MG IN THE EVENING)
     Route: 048
     Dates: start: 20220114, end: 20220416
  5. ADALIMUMAB [Concomitant]
     Active Substance: ADALIMUMAB
     Indication: Colitis ulcerative
     Dosage: 80MG ON 29MAR2022, 40MG ON 06APR2022
     Route: 058
     Dates: start: 20220329, end: 20220416
  6. MIYABM [Concomitant]
     Indication: Colitis ulcerative
     Dosage: 2 TABLETS, 2X/DAY
     Route: 048
     Dates: start: 20211223
  7. FAMOTIDINE [Concomitant]
     Active Substance: FAMOTIDINE
     Indication: Colitis ulcerative
     Dosage: 20 MG, 1X/DAY
     Route: 048
     Dates: start: 20211225
  8. SODIUM FERROUS CITRATE [Concomitant]
     Active Substance: SODIUM FERROUS CITRATE
     Indication: Colitis ulcerative
     Dosage: 50 MG, 1X/DAY
     Route: 048
     Dates: start: 20211224

REACTIONS (2)
  - Pancreatitis [Recovering/Resolving]
  - Off label use [Unknown]

NARRATIVE: CASE EVENT DATE: 20220415
